FAERS Safety Report 5915160-0 (Version None)
Quarter: 2008Q3

REPORT INFORMATION
  Report Type: 
  Country: None (occurrence: None)
  Receive Date: 20080909
  Receipt Date: 20080225
  Transmission Date: 20090109
  Serious: Yes (Death)
  Sender: FDA-Public Use
  Company Number: 163-20785-08010563

PATIENT
  Age: 64 Year
  Sex: Female

DRUGS (2)
  1. THALOMID [Suspect]
     Indication: SMALL CELL LUNG CANCER STAGE UNSPECIFIED
     Dosage: 400 MG, DAILY Q HS, ORAL
     Route: 048
     Dates: start: 20060830, end: 20070614
  2. THALOMID [Suspect]

REACTIONS (1)
  - NEOPLASM PROGRESSION [None]
